FAERS Safety Report 10234065 (Version 9)
Quarter: 2016Q2

REPORT INFORMATION
  Report Type: Report from Study
  Country: GB (occurrence: GB)
  Receive Date: 20140612
  Receipt Date: 20160511
  Transmission Date: 20160815
  Serious: Yes (Hospitalization, Other)
  Sender: FDA-Public Use
  Company Number: PHHO2014GB007319

PATIENT
  Age: 15 Year
  Sex: Male
  Weight: 84.9 kg

DRUGS (9)
  1. LDK378 [Suspect]
     Active Substance: CERITINIB
     Indication: ANAPLASTIC LARGE-CELL LYMPHOMA
     Dosage: 950 MG, QD
     Route: 048
     Dates: start: 20140409, end: 20140601
  2. MYCOPHENOLATE MOFETIL. [Concomitant]
     Active Substance: MYCOPHENOLATE MOFETIL
     Indication: PROPHYLAXIS AGAINST GRAFT VERSUS HOST DISEASE
     Dosage: 1 G, TID
     Route: 042
     Dates: start: 20141031
  3. POSACONAZOLE [Concomitant]
     Active Substance: POSACONAZOLE
     Indication: ANTIFUNGAL PROPHYLAXIS
     Dosage: 200 MG, TID
     Route: 048
     Dates: start: 20141022
  4. ACICLOVIR [Concomitant]
     Active Substance: ACYCLOVIR
     Indication: ANTIVIRAL PROPHYLAXIS
     Dosage: 200 MG, QD
     Route: 048
     Dates: start: 20141024
  5. CYCLIZINE [Concomitant]
     Active Substance: CYCLIZINE
     Indication: NAUSEA
     Dosage: 50 MG, PRN, TDS
     Route: 048
     Dates: start: 20140409
  6. LOPERAMIDE [Concomitant]
     Active Substance: LOPERAMIDE
     Indication: DIARRHOEA
     Dosage: 2-4 MG, PRN
     Route: 048
     Dates: start: 20140419
  7. COTRIMOXAZOLE [Concomitant]
     Active Substance: SULFAMETHOXAZOLE\TRIMETHOPRIM
     Indication: ANTIFUNGAL PROPHYLAXIS
     Dosage: 480 MG, BID
     Route: 048
     Dates: start: 20141015
  8. LDK378 [Suspect]
     Active Substance: CERITINIB
     Dosage: 950 MG, QD
     Route: 048
     Dates: start: 20140603, end: 20140613
  9. LDK378 [Suspect]
     Active Substance: CERITINIB
     Dosage: 450 MG/M2, QD
     Route: 048
     Dates: start: 20140704, end: 20141009

REACTIONS (4)
  - Pneumonia [Recovering/Resolving]
  - Pericarditis [Recovered/Resolved with Sequelae]
  - Febrile neutropenia [Recovered/Resolved]
  - Chest pain [Recovered/Resolved]

NARRATIVE: CASE EVENT DATE: 20140515
